FAERS Safety Report 7512161-6 (Version None)
Quarter: 2011Q2

REPORT INFORMATION
  Report Type: 
  Country: None (occurrence: None)
  Receive Date: 20110531
  Receipt Date: 20110510
  Transmission Date: 20111010
  Serious: No
  Sender: FDA-Public Use
  Company Number: US-B.I. PHARMACEUTICALS,INC./RIDGEFIELD-2011-BP-09133BP

PATIENT
  Sex: Male

DRUGS (7)
  1. SIMVASTTIN [Concomitant]
     Dosage: 40 NR
     Dates: start: 20070417
  2. PRILOSEC [Concomitant]
  3. LEVOTHYROXINE SODIUM [Concomitant]
  4. METOPROLOL TARTRATE [Concomitant]
  5. FERROUS SULFATE TAB [Concomitant]
  6. PRADAXA [Suspect]
     Dosage: 300 MG
     Route: 048
     Dates: start: 20101201, end: 20101230
  7. LISINOPRIL [Concomitant]

REACTIONS (2)
  - PYREXIA [None]
  - PAIN [None]
